FAERS Safety Report 12392035 (Version 2)
Quarter: 2016Q3

REPORT INFORMATION
  Report Type: Report from Study
  Country: US (occurrence: US)
  Receive Date: 20160523
  Receipt Date: 20160815
  Transmission Date: 20161109
  Serious: Yes (Life-Threatening, Hospitalization, Other)
  Sender: FDA-Public Use
  Company Number: US-ROCHE-1760362

PATIENT

DRUGS (2)
  1. ALTEPLASE [Suspect]
     Active Substance: ALTEPLASE
     Indication: CEREBRAL HAEMORRHAGE
  2. ALTEPLASE [Suspect]
     Active Substance: ALTEPLASE
     Indication: CEREBROVASCULAR ACCIDENT
     Route: 065

REACTIONS (3)
  - Seizure [Recovered/Resolved]
  - Brain neoplasm malignant [Unknown]
  - Atelectasis [Unknown]

NARRATIVE: CASE EVENT DATE: 20160326
